FAERS Safety Report 15533435 (Version 19)
Quarter: 2021Q4

REPORT INFORMATION
  Report Type: Spontaneous
  Country: US (occurrence: US)
  Receive Date: 20181019
  Receipt Date: 20211001
  Transmission Date: 20220303
  Serious: Yes (Disabling)
  Sender: FDA-Public Use
  Company Number: US-PFIZER INC-2018425269

PATIENT
  Age: 41 Year
  Sex: Female

DRUGS (2)
  1. LYRICA [Suspect]
     Active Substance: PREGABALIN
     Indication: Fibromyalgia
     Dosage: 300 MG, 2X/DAY
  2. LYRICA [Suspect]
     Active Substance: PREGABALIN
     Indication: Tendonitis
     Dosage: 300 MG, 2X/DAY
     Route: 048
     Dates: start: 20131107

REACTIONS (12)
  - Eye disorder [Unknown]
  - Off label use [Unknown]
  - Myalgia [Unknown]
  - Nervous system disorder [Unknown]
  - Drug hypersensitivity [Unknown]
  - Nasal pruritus [Unknown]
  - Pain [Unknown]
  - Insomnia [Unknown]
  - Back pain [Unknown]
  - Anxiety [Unknown]
  - Withdrawal syndrome [Unknown]
  - Memory impairment [Unknown]

NARRATIVE: CASE EVENT DATE: 20210419
